FAERS Safety Report 19974046 (Version 2)
Quarter: 2022Q1

REPORT INFORMATION
  Report Type: Spontaneous
  Country: US (occurrence: US)
  Receive Date: 20211020
  Receipt Date: 20220215
  Transmission Date: 20220423
  Serious: No
  Sender: FDA-Public Use
  Company Number: US-PFIZER INC-202101328003

PATIENT
  Age: 64 Year
  Sex: Female
  Weight: 104.31 kg

DRUGS (13)
  1. IBRANCE [Suspect]
     Active Substance: PALBOCICLIB
     Indication: Breast cancer female
     Dosage: 100 MG, CYCLIC (DAILY X 21 DAYS - 7 DAYS OFF)
     Route: 048
     Dates: start: 20170424
  2. IBRANCE [Suspect]
     Active Substance: PALBOCICLIB
     Dosage: UNK (TAKING EVERY OTHER DAY THIS CYCLE)
     Route: 048
  3. BIOTIN [Concomitant]
     Active Substance: BIOTIN
     Dosage: UNK
  4. FOLIC ACID [Concomitant]
     Active Substance: FOLIC ACID
     Dosage: UNK
  5. GINKGO 100 [Concomitant]
     Dosage: UNK
  6. GLUCOSAMINE [Concomitant]
     Active Substance: GLUCOSAMINE
     Dosage: UNK
  7. GUAIFENESIN [Concomitant]
     Active Substance: GUAIFENESIN
     Dosage: UNK
  8. IBUPROFEN [Concomitant]
     Active Substance: IBUPROFEN
     Dosage: UNK
  9. IRON [Concomitant]
     Active Substance: IRON
     Dosage: UNK
  10. VITAMIN B12 [Concomitant]
     Active Substance: CYANOCOBALAMIN
     Dosage: UNK
  11. VITAMIN C [Concomitant]
     Active Substance: ASCORBIC ACID
     Dosage: UNK
  12. VITAMIN D3 [Concomitant]
     Active Substance: CHOLECALCIFEROL
     Dosage: UNK
  13. VITAMIN E [Concomitant]
     Active Substance: .ALPHA.-TOCOPHEROL
     Dosage: UNK

REACTIONS (10)
  - Off label use [Unknown]
  - Red blood cell count decreased [Unknown]
  - Peripheral swelling [Unknown]
  - Oedema [Unknown]
  - Arthropod bite [Unknown]
  - Illness [Unknown]
  - Platelet count decreased [Unknown]
  - White blood cell count decreased [Unknown]
  - COVID-19 [Unknown]
  - Fatigue [Unknown]

NARRATIVE: CASE EVENT DATE: 20210701
